FAERS Safety Report 8928709 (Version 1)
Quarter: 2012Q4

REPORT INFORMATION
  Report Type: 
  Country: US (occurrence: US)
  Receive Date: 20121128
  Receipt Date: 20121128
  Transmission Date: 20130627
  Serious: No
  Sender: FDA-Public Use
  Company Number: US-B.I. PHARMACEUTICALS,INC./RIDGEFIELD-2012-BI-00940BP

PATIENT
  Age: 88 None
  Sex: Female
  Weight: 49.9 kg

DRUGS (5)
  1. PRADAXA [Suspect]
     Indication: ATRIAL FIBRILLATION
     Dosage: 300 mg
     Route: 048
     Dates: start: 201206
  2. PRADAXA [Suspect]
     Route: 048
  3. LISINOPRIL [Concomitant]
     Indication: HYPERTENSION
     Dosage: 10 mg
     Route: 048
     Dates: start: 2009
  4. CARVEDILOL [Concomitant]
     Indication: CARDIAC DISORDER
     Dosage: 6.5 mg
     Route: 048
     Dates: start: 2009
  5. BABY ASPIRIN [Concomitant]
     Indication: CARDIAC DISORDER
     Dosage: 81 mg
     Route: 048
     Dates: start: 2009

REACTIONS (2)
  - Memory impairment [Not Recovered/Not Resolved]
  - Abnormal loss of weight [Not Recovered/Not Resolved]
